FAERS Safety Report 6591494-4 (Version None)
Quarter: 2010Q1

REPORT INFORMATION
  Report Type: 
  Country: None (occurrence: None)
  Receive Date: 20100219
  Receipt Date: 20100210
  Transmission Date: 20100710
  Serious: Yes (Hospitalization)
  Sender: FDA-Public Use
  Company Number: KR-ABBOTT-10P-090-0625578-00

PATIENT
  Age: 48 Year
  Sex: Male
  Weight: 80 kg

DRUGS (7)
  1. HUMIRA [Suspect]
     Indication: RHEUMATOID ARTHRITIS
     Dates: start: 20080721, end: 20081027
  2. ISONICOTINIC ACID HYDRAZIDE [Concomitant]
     Indication: PROPHYLAXIS
     Route: 048
     Dates: start: 20080630
  3. SULFASALAZINE [Concomitant]
     Indication: ANKYLOSING SPONDYLITIS
     Route: 048
     Dates: start: 20080602, end: 20080720
  4. COLCHICINE [Concomitant]
     Indication: GOUT
     Route: 048
     Dates: start: 20080320
  5. REBAMIPIDE [Concomitant]
     Indication: GASTROINTESTINAL DISORDER
     Dosage: 100 MG
     Route: 048
     Dates: start: 20080630
  6. REBAMIPIDE [Concomitant]
     Indication: PROPHYLAXIS
  7. ULTRACET [Concomitant]
     Indication: ANKYLOSING SPONDYLITIS
     Route: 048
     Dates: start: 20080630

REACTIONS (1)
  - BLOOD CREATININE INCREASED [None]
